FAERS Safety Report 11164150 (Version 2)
Quarter: 2015Q2

REPORT INFORMATION
  Report Type: Spontaneous
  Country: DE (occurrence: DE)
  Receive Date: 20150604
  Receipt Date: 20150629
  Transmission Date: 20150821
  Serious: No
  Sender: FDA-Public Use
  Company Number: DE-JNJFOC-20150518334

PATIENT
  Sex: Male

DRUGS (1)
  1. DUROGESIC SMAT [Suspect]
     Active Substance: FENTANYL
     Indication: PAIN
     Route: 062

REACTIONS (2)
  - Drug administration error [Unknown]
  - Drug withdrawal syndrome [Recovered/Resolved]
